FAERS Safety Report 6088517-8 (Version None)
Quarter: 2009Q1

REPORT INFORMATION
  Report Type: 
  Country: None (occurrence: None)
  Receive Date: 20090219
  Receipt Date: 20090212
  Transmission Date: 20090719
  Serious: Yes (Life-Threatening, Hospitalization)
  Sender: FDA-Public Use
  Company Number: 2009SP003417

PATIENT
  Sex: Male

DRUGS (1)
  1. TEMOZOLOMIDE [Suspect]
     Indication: GLIOMA
     Dosage: 70 MG, PO
     Route: 048
     Dates: start: 20090107

REACTIONS (2)
  - HYDROCEPHALUS [None]
  - STATUS EPILEPTICUS [None]
